FAERS Safety Report 20518648 (Version 1)
Quarter: 2022Q1

REPORT INFORMATION
  Report Type: Spontaneous
  Country: US (occurrence: None)
  Receive Date: 20220225
  Receipt Date: 20220225
  Transmission Date: 20220423
  Serious: Yes (Death, Hospitalization)
  Sender: FDA-Public Use
  Company Number: None

PATIENT
  Sex: Female
  Weight: 54 kg

DRUGS (1)
  1. RITUXIMAB [Suspect]
     Active Substance: RITUXIMAB
     Indication: Product used for unknown indication

REACTIONS (28)
  - Myocardial infarction [None]
  - Thrombocytopenia [None]
  - Febrile neutropenia [None]
  - Lymphocyte count decreased [None]
  - Hypokalaemia [None]
  - White blood cell count decreased [None]
  - Stem cell transplant [None]
  - Sepsis [None]
  - Disorientation [None]
  - Confusional state [None]
  - Dyspnoea [None]
  - Hypoxia [None]
  - Pneumonia [None]
  - Platelet transfusion [None]
  - Packed red blood cell transfusion [None]
  - Procalcitonin increased [None]
  - Subarachnoid haemorrhage [None]
  - Blood culture positive [None]
  - Candida infection [None]
  - Organising pneumonia [None]
  - Aspiration [None]
  - Pulmonary mass [None]
  - Electrocardiogram QT prolonged [None]
  - Malnutrition [None]
  - Vascular device infection [None]
  - Fungaemia [None]
  - Positron emission tomogram abnormal [None]
  - Thyroid disorder [None]

NARRATIVE: CASE EVENT DATE: 20220105
